FAERS Safety Report 19381471 (Version 1)
Quarter: 2021Q2

REPORT INFORMATION
  Report Type: Spontaneous
  Country: US (occurrence: US)
  Receive Date: 20210607
  Receipt Date: 20210607
  Transmission Date: 20210717
  Serious: No
  Sender: FDA-Public Use
  Company Number: US-PFIZER INC-2021191767

PATIENT
  Sex: Female

DRUGS (2)
  1. LYRICA [Suspect]
     Active Substance: PREGABALIN
     Indication: POST HERPETIC NEURALGIA
     Dosage: 25 MG (TOOK ONE)
  2. PREGABALIN. [Suspect]
     Active Substance: PREGABALIN
     Indication: POST HERPETIC NEURALGIA
     Dosage: 25 MG (TOOK ONE CAPSULE)

REACTIONS (4)
  - Drug ineffective [Unknown]
  - Tremor [Unknown]
  - Taste disorder [Unknown]
  - Posture abnormal [Unknown]
